FAERS Safety Report 7073278-6 (Version None)
Quarter: 2010Q4

REPORT INFORMATION
  Report Type: 
  Country: None (occurrence: None)
  Receive Date: 20101029
  Receipt Date: 20100520
  Transmission Date: 20110411
  Serious: No
  Sender: FDA-Public Use
  Company Number: A0860617A

PATIENT
  Age: 72 Year
  Sex: Female

DRUGS (7)
  1. ADVAIR DISKUS 100/50 [Suspect]
     Indication: CHRONIC OBSTRUCTIVE PULMONARY DISEASE
     Dosage: 1PUFF TWICE PER DAY
     Route: 055
  2. VERAPAMIL [Concomitant]
  3. XALATAN [Concomitant]
  4. AZOPT [Concomitant]
  5. METFORMIN [Concomitant]
  6. GLIMEPIRIDE [Concomitant]
  7. POTASSIUM CHLORIDE [Concomitant]

REACTIONS (5)
  - APHONIA [None]
  - CANDIDIASIS [None]
  - DRUG INEFFECTIVE [None]
  - DYSPNOEA [None]
  - THROAT IRRITATION [None]
